FAERS Safety Report 13865575 (Version 2)
Quarter: 2017Q4

REPORT INFORMATION
  Report Type: Report from Study
  Country: FR (occurrence: FR)
  Receive Date: 20170814
  Receipt Date: 20171219
  Transmission Date: 20180320
  Serious: Yes (Hospitalization, Other)
  Sender: FDA-Public Use
  Company Number: FR-SHIRE-2017BLT005209

PATIENT
  Age: 10 Year
  Sex: Female
  Weight: 41 kg

DRUGS (23)
  1. PEGASPARGASE [Suspect]
     Active Substance: PEGASPARGASE
     Indication: ACUTE LYMPHOCYTIC LEUKAEMIA
     Dosage: 1615 IU, ONE DOSE
     Route: 042
     Dates: start: 20170518, end: 20170518
  2. 6-MERCAPTOPURINE MONOHYDRATE [Suspect]
     Active Substance: MERCAPTOPURINE
     Indication: ACUTE LYMPHOCYTIC LEUKAEMIA
     Dosage: 65 MG, 1X/DAY:QD, (D10-D21, D29-D42)
     Route: 048
     Dates: start: 20170412, end: 20170524
  3. NUBAIN [Concomitant]
     Active Substance: NALBUPHINE HYDROCHLORIDE
     Indication: PAIN
  4. EUPANTOL [Concomitant]
     Active Substance: PANTOPRAZOLE SODIUM
     Indication: DYSPEPSIA
  5. PEGASPARGASE [Suspect]
     Active Substance: PEGASPARGASE
     Dosage: 1615 IU, ONE DOSE
     Route: 042
     Dates: start: 20170419, end: 20170419
  6. FASTURTEC [Concomitant]
     Active Substance: RASBURICASE
     Indication: HYPERURICAEMIA
  7. PERFALGAN [Concomitant]
     Active Substance: ACETAMINOPHEN
     Indication: PYREXIA
  8. VINCRISTINE [Suspect]
     Active Substance: VINCRISTINE
     Indication: ACUTE LYMPHOCYTIC LEUKAEMIA
     Dosage: 1.9 MG, 1X/DAY:QD
     Route: 042
     Dates: start: 20170518, end: 20170518
  9. VINCRISTINE [Suspect]
     Active Substance: VINCRISTINE
     Dosage: 1.9 MG, UNK
     Route: 042
     Dates: start: 20170412, end: 20170412
  10. ZOPHREN                            /00955301/ [Concomitant]
     Active Substance: ONDANSETRON
     Indication: NAUSEA
  11. NUBAIN [Concomitant]
     Active Substance: NALBUPHINE HYDROCHLORIDE
     Indication: PREMEDICATION
  12. ROCEPHINE [Concomitant]
     Active Substance: CEFTRIAXONE SODIUM
     Indication: PYREXIA
  13. VITAMIN K [Concomitant]
     Active Substance: PHYTONADIONE
     Indication: PRODUCT USED FOR UNKNOWN INDICATION
  14. PLITICAN [Concomitant]
     Active Substance: ALIZAPRIDE HYDROCHLORIDE
     Indication: NAUSEA
  15. DEXAMETHASONE. [Suspect]
     Active Substance: DEXAMETHASONE
     Indication: ACUTE LYMPHOCYTIC LEUKAEMIA
     Dosage: 7.7 MG, 1X/DAY:QD (D1-D5, D29-D33)
     Route: 048
     Dates: start: 20170412, end: 20170516
  16. METHOTREXATE. [Suspect]
     Active Substance: METHOTREXATE
     Dosage: 12 MG, 1X/DAY:QD
     Route: 037
     Dates: start: 20170413, end: 20170511
  17. ATARAX [Concomitant]
     Active Substance: HYDROXYZINE HYDROCHLORIDE
     Indication: PREMEDICATION
  18. METHOTREXATE. [Suspect]
     Active Substance: METHOTREXATE
     Indication: ACUTE LYMPHOCYTIC LEUKAEMIA
     Dosage: 15 MG, ONE DOSE
     Route: 037
     Dates: start: 20170511, end: 20170511
  19. PERFALGAN [Concomitant]
     Active Substance: ACETAMINOPHEN
     Indication: PAIN
  20. ACLOTINE [Concomitant]
     Active Substance: ANTITHROMBIN III HUMAN
     Indication: ANTI-THROMBIN ANTIBODY
  21. DEBRIDAT                           /00465201/ [Concomitant]
     Active Substance: TRIMEBUTINE MALEATE
     Indication: ABDOMINAL PAIN
  22. BACTRIM [Concomitant]
     Active Substance: SULFAMETHOXAZOLE\TRIMETHOPRIM
     Indication: PROPHYLAXIS
  23. VANCOCINE [Concomitant]
     Active Substance: VANCOMYCIN
     Indication: PYREXIA

REACTIONS (3)
  - Superior sagittal sinus thrombosis [Recovered/Resolved]
  - Transverse sinus thrombosis [Recovered/Resolved]
  - Cerebral ischaemia [Recovered/Resolved]

NARRATIVE: CASE EVENT DATE: 20170524
